FAERS Safety Report 7487279 (Version 7)
Quarter: 2013Q4

REPORT INFORMATION
  Report Type: Report from Study
  Country: FR (occurrence: FR)
  Receive Date: 20100719
  Receipt Date: 20131206
  Transmission Date: 20140711
  Serious: Yes (Death, Hospitalization)
  Sender: FDA-Public Use
  Company Number: FR-ROCHE-715348

PATIENT
  Age: 47 Year
  Sex: Female
  Weight: 54 kg

DRUGS (4)
  1. BEVACIZUMAB [Suspect]
     Indication: GLIOBLASTOMA
     Dosage: LAST DOSE PRIOR TO SAE: 24 JUNE 2010, CUMULATIVE DOSE: 6480 MG. SAE CYCLE NO: 12.
     Route: 042
     Dates: start: 20091230, end: 20100708
  2. IRINOTECAN [Suspect]
     Indication: GLIOBLASTOMA
     Dosage: FLACON, LAST DOSE PRIOR TO SAE: 24 JUNE 2010, CUMULATIVE DOSE: 1600MG. SAE CYCLE NO: 08.
     Route: 042
     Dates: start: 20091230, end: 20100708
  3. TEMOZOLOMIDE [Suspect]
     Indication: GLIOBLASTOMA
     Dosage: CUMULATIVE DOSE: 120 MG.  SAE CYCLE NO: 06.
     Route: 048
     Dates: start: 20100315, end: 20100425
  4. MEDROL [Concomitant]
     Indication: PROPHYLAXIS
     Route: 048
     Dates: start: 200911, end: 20100717

REACTIONS (3)
  - Cerebral haemorrhage [Fatal]
  - Cardiac arrest [Fatal]
  - Lumbar puncture [Recovered/Resolved]
